FAERS Safety Report 15273099 (Version 1)
Quarter: 2018Q3

REPORT INFORMATION
  Report Type: Spontaneous
  Country: US (occurrence: US)
  Receive Date: 20180813
  Receipt Date: 20180813
  Transmission Date: 20181010
  Serious: No
  Sender: FDA-Public Use
  Company Number: US-PURDUE-USA-2018-0144235

PATIENT
  Sex: Female

DRUGS (2)
  1. BUPRENORPHINE (SIMILAR TO NDA 21?306) [Suspect]
     Active Substance: BUPRENORPHINE
     Dosage: 30 MCG/HR WEEKLY ? 10 MCG AND 20MCG PATCHES
     Route: 062
  2. BUPRENORPHINE (SIMILAR TO NDA 21?306) [Suspect]
     Active Substance: BUPRENORPHINE
     Indication: PRODUCT USED FOR UNKNOWN INDICATION
     Dosage: 30 MCG/HR, WEEKLY ? 20MCG AND 10MCG PATCH
     Route: 062

REACTIONS (2)
  - Extra dose administered [Unknown]
  - Product adhesion issue [Unknown]
